FAERS Safety Report 25911067 (Version 1)
Quarter: 2025Q4

REPORT INFORMATION
  Report Type: Spontaneous
  Country: JP (occurrence: JP)
  Receive Date: 20251013
  Receipt Date: 20251013
  Transmission Date: 20260118
  Serious: Yes (Death, Hospitalization)
  Sender: ROCHE
  Company Number: JP-CHUGAI-2025032136

PATIENT
  Age: 48 Year
  Sex: Male

DRUGS (1)
  1. TAMIFLU [Suspect]
     Active Substance: OSELTAMIVIR PHOSPHATE
     Indication: Influenza
     Dosage: UNK
     Route: 050

REACTIONS (4)
  - Multiple organ dysfunction syndrome [Fatal]
  - Pneumonia staphylococcal [Fatal]
  - Septic shock [Unknown]
  - Diabetic ketoacidosis [Unknown]
